FAERS Safety Report 10187225 (Version 2)
Quarter: 2014Q2

REPORT INFORMATION
  Report Type: Report from Study
  Country: US (occurrence: US)
  Receive Date: 20140522
  Receipt Date: 20140522
  Transmission Date: 20141212
  Serious: Yes (Hospitalization, Other)
  Sender: FDA-Public Use
  Company Number: PHEH2014US006353

PATIENT
  Sex: Female

DRUGS (3)
  1. SANDOSTATIN LAR DEPOT [Suspect]
     Indication: CARCINOID SYNDROME
     Dosage: 30 MG, UNK
  2. SANDOSTATIN LAR DEPOT [Suspect]
     Indication: ACROMEGALY
  3. SANDOSTATIN LAR DEPOT [Suspect]
     Indication: GIGANTISM

REACTIONS (6)
  - Hypertension [Unknown]
  - Abdominal discomfort [Unknown]
  - Gastritis [Recovered/Resolved]
  - Duodenitis [Recovered/Resolved]
  - Gastrooesophageal reflux disease [Recovered/Resolved]
  - Abdominal pain upper [Recovered/Resolved]
